FAERS Safety Report 5040626-8 (Version None)
Quarter: 2006Q2

REPORT INFORMATION
  Report Type: 
  Country: None (occurrence: None)
  Receive Date: 20060628
  Receipt Date: 20060616
  Transmission Date: 20061013
  Serious: Yes (Other)
  Sender: FDA-Public Use
  Company Number: S06-TUR-01973-01

PATIENT
  Age: 21 Year
  Sex: Female

DRUGS (2)
  1. ESCITALOPRAM OXALATE [Suspect]
     Dosage: 22 TABLET ONCE PO
     Route: 048
     Dates: start: 20060425, end: 20060425
  2. ESCITALOPRAM OXALATE [Suspect]
     Dosage: 10 MG QD PO
     Route: 048

REACTIONS (5)
  - HEADACHE [None]
  - INTENTIONAL OVERDOSE [None]
  - PHOTOPHOBIA [None]
  - SUICIDE ATTEMPT [None]
  - TINNITUS [None]
